FAERS Safety Report 23430500 (Version 1)
Quarter: 2024Q1

REPORT INFORMATION
  Report Type: Spontaneous
  Country: JP (occurrence: JP)
  Receive Date: 20240123
  Receipt Date: 20240123
  Transmission Date: 20240410
  Serious: Yes (Other)
  Sender: FDA-Public Use
  Company Number: JP-CHUGAI-2023032204

PATIENT
  Age: 4 Decade
  Sex: Female

DRUGS (2)
  1. ROZLYTREK [Suspect]
     Active Substance: ENTRECTINIB
     Indication: Non-small cell lung cancer
     Dosage: UNK
     Route: 048
     Dates: start: 20230904
  2. ROZLYTREK [Suspect]
     Active Substance: ENTRECTINIB
     Dosage: 12 HOURS
     Route: 048

REACTIONS (3)
  - Cardiac failure [Unknown]
  - Dysphagia [Unknown]
  - Delirium [Recovered/Resolved]

NARRATIVE: CASE EVENT DATE: 20230904
